FAERS Safety Report 12893375 (Version 2)
Quarter: 2018Q2

REPORT INFORMATION
  Report Type: Spontaneous
  Country: US (occurrence: US)
  Receive Date: 20161028
  Receipt Date: 20180504
  Transmission Date: 20180711
  Serious: Yes (Other)
  Sender: FDA-Public Use
  Company Number: US-PFIZER INC-2016499446

PATIENT
  Sex: Female

DRUGS (2)
  1. HYDROXYZINE PAMOATE. [Suspect]
     Active Substance: HYDROXYZINE PAMOATE
     Dosage: UNK
  2. XANAX XR [Suspect]
     Active Substance: ALPRAZOLAM
     Dosage: UNK

REACTIONS (2)
  - Drug hypersensitivity [Unknown]
  - Seizure [Unknown]
